FAERS Safety Report 7383056-6 (Version None)
Quarter: 2011Q1

REPORT INFORMATION
  Report Type: 
  Country: None (occurrence: None)
  Receive Date: 20110330
  Receipt Date: 20110328
  Transmission Date: 20110831
  Serious: No
  Sender: FDA-Public Use
  Company Number: US-PFIZER INC-2011069034

PATIENT
  Sex: Female
  Weight: 43 kg

DRUGS (6)
  1. CLONAZEPAM [Concomitant]
     Dosage: 0.25 MG, AS NEEDED
     Route: 048
     Dates: start: 20110201, end: 20110301
  2. ATIVAN [Concomitant]
     Indication: SOCIAL PHOBIA
     Dosage: 0.5 MG, AS NEEDED
     Route: 048
  3. ATIVAN [Concomitant]
     Indication: PANIC ATTACK
  4. ZOLOFT [Suspect]
     Indication: MANIA
  5. ZOLOFT [Suspect]
     Indication: SOCIAL PHOBIA
  6. ZOLOFT [Suspect]
     Indication: DEPRESSION
     Dosage: 100 MG, 1X/DAY
     Route: 048
     Dates: start: 20110218

REACTIONS (1)
  - ACNE [None]
